FAERS Safety Report 25458184 (Version 1)
Quarter: 2025Q2

REPORT INFORMATION
  Report Type: Spontaneous
  Country: US (occurrence: None)
  Receive Date: 20250620
  Receipt Date: 20250620
  Transmission Date: 20250717
  Serious: Yes (Hospitalization)
  Sender: EMMAUS LIFE SCIENCES
  Company Number: US-Emmaus Medical, Inc.-EMM202409-000451

PATIENT
  Age: 43 Year
  Sex: Female
  Weight: 63 kg

DRUGS (9)
  1. ENDARI [Suspect]
     Active Substance: GLUTAMINE
     Indication: Sickle cell disease
     Route: 048
     Dates: start: 202312
  2. ENDARI [Suspect]
     Active Substance: GLUTAMINE
     Indication: Sickle cell anaemia with crisis
     Route: 048
     Dates: start: 20240522
  3. ENDARI [Suspect]
     Active Substance: GLUTAMINE
     Indication: Dactylitis
     Route: 048
     Dates: start: 20240906
  4. OXBRYTA [Concomitant]
     Active Substance: VOXELOTOR
     Indication: Sickle cell disease
     Route: 065
  5. OXBRYTA [Concomitant]
     Active Substance: VOXELOTOR
     Route: 065
  6. HYDROXYUREA [Concomitant]
     Active Substance: HYDROXYUREA
     Indication: Product used for unknown indication
     Route: 065
  7. NORCO [Concomitant]
     Active Substance: ACETAMINOPHEN\HYDROCODONE BITARTRATE
     Indication: Pain
     Route: 065
  8. VITAMIN B12 [Concomitant]
     Active Substance: CYANOCOBALAMIN
     Indication: Product used for unknown indication
     Route: 065
  9. VITAMIN D2 [Concomitant]
     Active Substance: ERGOCALCIFEROL
     Indication: Product used for unknown indication
     Route: 065

REACTIONS (5)
  - Hospitalisation [Unknown]
  - Emergency care [Unknown]
  - Pain [Unknown]
  - Product dose omission issue [Unknown]
  - Insurance issue [Unknown]

NARRATIVE: CASE EVENT DATE: 20240801
